APPROVED DRUG PRODUCT: RAMELTEON
Active Ingredient: RAMELTEON
Strength: 8MG
Dosage Form/Route: TABLET;ORAL
Application: A215243 | Product #001 | TE Code: AB
Applicant: MICRO LABS LTD
Approved: Feb 9, 2023 | RLD: No | RS: No | Type: RX